FAERS Safety Report 5914217-8 (Version None)
Quarter: 2008Q4

REPORT INFORMATION
  Report Type: 
  Country: None (occurrence: None)
  Receive Date: 20081009
  Receipt Date: 20080929
  Transmission Date: 20090506
  Serious: Yes (Other)
  Sender: FDA-Public Use
  Company Number: BR-PFIZER INC-2008037257

PATIENT
  Sex: Female
  Weight: 80 kg

DRUGS (1)
  1. CELEBRA [Suspect]
     Indication: PAIN IN EXTREMITY
     Route: 048
     Dates: end: 20080101

REACTIONS (1)
  - CHOLECYSTECTOMY [None]
